FAERS Safety Report 17761298 (Version 1)
Quarter: 2020Q2

REPORT INFORMATION
  Report Type: Spontaneous
  Country: TR (occurrence: TR)
  Receive Date: 20200508
  Receipt Date: 20200508
  Transmission Date: 20200714
  Serious: Yes (Hospitalization, Other)
  Sender: FDA-Public Use
  Company Number: TR-ACTELION-A-CH2020-204777

PATIENT
  Age: 39 Year
  Sex: Female

DRUGS (2)
  1. SILDENAFIL. [Concomitant]
     Active Substance: SILDENAFIL
  2. BOSENTAN. [Suspect]
     Active Substance: BOSENTAN
     Indication: PULMONARY ARTERIAL HYPERTENSION
     Dosage: UNK
     Route: 048

REACTIONS (9)
  - Angina pectoris [Unknown]
  - Coronary artery restenosis [Unknown]
  - Arterial aneurysm repair [Recovered/Resolved]
  - Coronary arterial stent insertion [Unknown]
  - Coronary artery bypass [Unknown]
  - Pulmonary artery aneurysm [Unknown]
  - Hepatomegaly [Unknown]
  - Coronary artery compression [Unknown]
  - Cardiac murmur [Unknown]
